FAERS Safety Report 16627598 (Version 1)
Quarter: 2019Q3

REPORT INFORMATION
  Report Type: Report from Study
  Country: AR (occurrence: AR)
  Receive Date: 20190724
  Receipt Date: 20190724
  Transmission Date: 20191004
  Serious: Yes (Life-Threatening, Hospitalization, Other)
  Sender: FDA-Public Use
  Company Number: AR-UCBSA-041447

PATIENT
  Age: 57 Year
  Sex: Female
  Weight: 75 kg

DRUGS (13)
  1. FOLIC ACID. [Concomitant]
     Active Substance: FOLIC ACID
     Indication: ANAEMIA
     Dosage: SUFFICIENT QUANTITY
     Route: 048
     Dates: start: 20070319, end: 20110921
  2. DEFLAZACORT [Concomitant]
     Active Substance: DEFLAZACORT
     Indication: PSORIATIC ARTHROPATHY
     Dosage: 6 MG, ONCE DAILY (QD)
     Route: 048
     Dates: start: 20080327
  3. DOMPERIDONE [Concomitant]
     Active Substance: DOMPERIDONE
     Indication: DYSPEPSIA
     Dosage: 10 MG, 2X/DAY (BID)
     Route: 048
     Dates: start: 20110329
  4. FOLIC ACID. [Concomitant]
     Active Substance: FOLIC ACID
     Indication: PROPHYLAXIS
  5. DICLOFENAC [Concomitant]
     Active Substance: DICLOFENAC
     Indication: PSORIATIC ARTHROPATHY
     Dosage: 100 MG, ONCE DAILY (QD)
     Route: 048
     Dates: start: 20100315
  6. RANITIDINE. [Concomitant]
     Active Substance: RANITIDINE
     Indication: GASTRITIS
     Dosage: 300 MG, ONCE DAILY (QD)
     Route: 048
     Dates: start: 200801
  7. METOCLOPRAMIDE. [Concomitant]
     Active Substance: METOCLOPRAMIDE
     Indication: GASTRITIS
     Dosage: NIGHTLY
     Route: 048
     Dates: start: 20080124
  8. METOCLOPRAMIDE. [Concomitant]
     Active Substance: METOCLOPRAMIDE
     Dosage: 10 MG, AS NEEDED (PRN)
     Route: 042
     Dates: start: 20111012, end: 20111012
  9. CERTOLIZUMAB PEGOL VS PLACEBO [Suspect]
     Active Substance: CERTOLIZUMAB PEGOL
     Indication: PSORIATIC ARTHROPATHY
     Dosage: NO OF DOSES RECEIVED: 16
     Route: 058
     Dates: start: 20110208, end: 20110921
  10. METOCLOPRAMIDE. [Concomitant]
     Active Substance: METOCLOPRAMIDE
     Indication: PROPHYLAXIS
     Dosage: 10 MG, AS NEEDED (PRN)
     Route: 042
     Dates: start: 20110913, end: 20110914
  11. PARACETAMOL [Concomitant]
     Active Substance: ACETAMINOPHEN
     Indication: PSORIATIC ARTHROPATHY
     Dosage: 600 MG, ONCE DAILY (QD)
     Route: 048
     Dates: start: 20100315
  12. ENALAPRIL [Concomitant]
     Active Substance: ENALAPRIL
     Indication: HYPERTENSION
     Dosage: 10 MG, ONCE DAILY (QD)
     Route: 048
     Dates: start: 1987
  13. MTX [Concomitant]
     Active Substance: METHOTREXATE SODIUM
     Indication: PSORIATIC ARTHROPATHY
     Dosage: SUFFICIENT QUANTITY
     Route: 030
     Dates: start: 20100315, end: 20100921

REACTIONS (1)
  - Breast cancer [Not Recovered/Not Resolved]

NARRATIVE: CASE EVENT DATE: 20110516
